FAERS Safety Report 5927294-5 (Version None)
Quarter: 2008Q4

REPORT INFORMATION
  Report Type: 
  Country: None (occurrence: None)
  Receive Date: 20081017
  Receipt Date: 20081007
  Transmission Date: 20090506
  Serious: No
  Sender: FDA-Public Use
  Company Number: 2007AP001331

PATIENT

DRUGS (2)
  1. PAROXETINE HCL [Suspect]
     Dosage: 20 MG, TRPL
     Route: 064
     Dates: start: 20061101, end: 20070322
  2. AMITRIPTYLINE HYDROCHLORIDE [Suspect]
     Dosage: 100 MG;TRPL
     Route: 064

REACTIONS (3)
  - DYSMORPHISM [None]
  - MATERNAL DRUGS AFFECTING FOETUS [None]
  - POLYDACTYLY [None]
